FAERS Safety Report 9172401 (Version 1)
Quarter: 2012Q4

REPORT INFORMATION
  Report Type: 
  Country: US (occurrence: US)
  Receive Date: 20120911
  Receipt Date: 20120911
  Transmission Date: 20130627
  Serious: No
  Sender: FDA-Public Use
  Company Number: US-TEVA-356778USA

PATIENT
  Age: 55 None
  Sex: Female
  Weight: 61.74 kg

DRUGS (6)
  1. NUVIGIL [Suspect]
     Indication: NARCOLEPSY
     Dosage: 250 Milligram Daily;
     Route: 048
  2. NEXIUM [Concomitant]
     Indication: GASTROOESOPHAGEAL REFLUX DISEASE
     Route: 048
  3. SPIRONOLACTONE [Concomitant]
     Indication: ALOPECIA
  4. FISH OIL [Concomitant]
     Indication: MEDICAL DIET
  5. BLACK COHOSH [Concomitant]
     Indication: MEDICAL DIET
     Dosage: 200 Milligram Daily;
     Route: 048
  6. BIOTIN [Concomitant]
     Indication: MEDICAL DIET

REACTIONS (1)
  - Drug ineffective [Unknown]
